FAERS Safety Report 6727755-5 (Version None)
Quarter: 2010Q2

REPORT INFORMATION
  Report Type: 
  Country: None (occurrence: None)
  Receive Date: 20100517
  Receipt Date: 20100506
  Transmission Date: 20101027
  Serious: Yes (Hospitalization)
  Sender: FDA-Public Use
  Company Number: FR-ASTRAZENECA-2009SE11459

PATIENT
  Age: 19919 Day
  Sex: Male
  Weight: 100 kg

DRUGS (5)
  1. NEXIUM [Suspect]
     Indication: GASTRIC ULCER
     Route: 048
     Dates: start: 20090802, end: 20090819
  2. BUMEX [Suspect]
     Dates: start: 20090730, end: 20090817
  3. CITALOPRAM HYDROBROMIDE [Suspect]
     Route: 048
     Dates: start: 20090801, end: 20090817
  4. TRANDATE [Suspect]
     Route: 048
     Dates: start: 20090728, end: 20090814
  5. CORTANCYL [Concomitant]
     Dates: start: 20090727, end: 20090812

REACTIONS (4)
  - BONE MARROW FAILURE [None]
  - LYMPHOPENIA [None]
  - RETICULOCYTE COUNT DECREASED [None]
  - THROMBOCYTOPENIA [None]
